FAERS Safety Report 16741388 (Version 1)
Quarter: 2019Q3

REPORT INFORMATION
  Report Type: Spontaneous
  Country: US (occurrence: US)
  Receive Date: 20190709
  Receipt Date: 20190709
  Transmission Date: 20191005
  Serious: Yes (Hospitalization)
  Sender: FDA-Public Use
  Company Number: None

PATIENT
  Age: 62 Year
  Sex: Female

DRUGS (12)
  1. AFINITOR [Suspect]
     Active Substance: EVEROLIMUS
     Indication: ENDOMETRIAL CANCER
     Route: 048
  2. KLOR-CON [Concomitant]
     Active Substance: POTASSIUM CHLORIDE
  3. XTAMPZA [Concomitant]
     Active Substance: OXYCODONE
  4. MAGNESIUM-OX [Concomitant]
  5. ONDANSETRON [Concomitant]
     Active Substance: ONDANSETRON
  6. OXYCONTIN [Concomitant]
     Active Substance: OXYCODONE HYDROCHLORIDE
  7. MORPHINE SUL [Concomitant]
     Active Substance: MORPHINE SULFATE
  8. FENTANYL. [Concomitant]
     Active Substance: FENTANYL
  9. FEROSUL [Concomitant]
  10. LEVOFLOXACIN. [Concomitant]
     Active Substance: LEVOFLOXACIN
  11. ANASTROZOLE. [Concomitant]
     Active Substance: ANASTROZOLE
  12. OXYCODONE [Concomitant]
     Active Substance: OXYCODONE

REACTIONS (3)
  - Blood potassium decreased [None]
  - Blood magnesium decreased [None]
  - Delirium [None]

NARRATIVE: CASE EVENT DATE: 20190531
